FAERS Safety Report 12690645 (Version 1)
Quarter: 2016Q3

REPORT INFORMATION
  Report Type: Spontaneous
  Country: US (occurrence: US)
  Receive Date: 20160826
  Receipt Date: 20160826
  Transmission Date: 20161109
  Serious: Yes (Hospitalization)
  Sender: FDA-Public Use
  Company Number: US-PFIZER INC-3156756

PATIENT
  Age: 34 Year
  Sex: Female
  Weight: 70.76 kg

DRUGS (16)
  1. VITAMIN D /00107901/ [Concomitant]
     Active Substance: ERGOCALCIFEROL
     Indication: SUPPLEMENTATION THERAPY
     Dosage: 1 DF, FREQ: AS NEEDED
     Route: 048
     Dates: start: 20080101
  2. AMITRIPTYLINE [Concomitant]
     Active Substance: AMITRIPTYLINE
     Indication: MIGRAINE
     Dosage: 10 MG, QHS
     Route: 048
     Dates: start: 20150902
  3. OMEPRAZOLE. [Concomitant]
     Active Substance: OMEPRAZOLE
     Indication: GASTRIC ULCER
     Dosage: 40 MG, FREQ: 1 DAY; INTERVAL: 1
     Route: 048
     Dates: start: 20160108
  4. RIBOFLAVIN [Concomitant]
     Active Substance: RIBOFLAVIN
     Indication: MIGRAINE
     Dosage: 100 MG, FREQ: 1 DAY; INTERVAL: 1
     Route: 048
     Dates: start: 20150904
  5. METAMUCIL/00029101/ [Concomitant]
     Indication: SUPPLEMENTATION THERAPY
     Dosage: 5.8 G, FREQ: AS NEEDED
     Route: 048
     Dates: start: 20150904
  6. VALIUM [Concomitant]
     Active Substance: DIAZEPAM
     Indication: IRRITABLE BOWEL SYNDROME
     Dosage: 5 MG, FREQ: 3 DAY; INTERVAL: 1
     Route: 048
     Dates: start: 20151122
  7. FOLIC ACID. [Concomitant]
     Active Substance: FOLIC ACID
     Indication: SUPPLEMENTATION THERAPY
     Dosage: 1 MG, FREQ: 1 DAY; INTERVAL: 1
     Route: 048
     Dates: start: 20151003
  8. IMITREX/01044801/ [Concomitant]
     Indication: MIGRAINE
     Dosage: 50 MG, FREQ: AS NEEDED
     Route: 048
     Dates: start: 20150909
  9. ORTHO TRI CYCLEN LO [Concomitant]
     Active Substance: ETHINYL ESTRADIOL\NORGESTIMATE
     Indication: CONTRACEPTION
     Dosage: DAILY
     Route: 048
     Dates: start: 20150601
  10. FISH OIL [Concomitant]
     Active Substance: FISH OIL
     Indication: SUPPLEMENTATION THERAPY
     Dosage: 1 DF, FREQ: AS NEEDED
     Route: 048
     Dates: start: 20080101
  11. XELJANZ [Suspect]
     Active Substance: TOFACITINIB CITRATE
     Indication: PSORIATIC ARTHROPATHY
     Dosage: FREQ: 2 DAY; INTERVAL: 1
     Route: 048
     Dates: start: 20150911, end: 20160123
  12. NAPROXEN. [Concomitant]
     Active Substance: NAPROXEN
     Indication: PSORIATIC ARTHROPATHY
     Dosage: 500 MG, DAILY DOSAGE: 1000 MG, FREQ: 2 DAY; INTERVAL: 1
     Route: 048
     Dates: start: 20160108
  13. METHOTREXATE SODIUM. [Suspect]
     Active Substance: METHOTREXATE SODIUM
     Indication: PSORIATIC ARTHROPATHY
     Dosage: 7.5 MG OR 0.3 ML, WEEKLY
     Route: 058
     Dates: start: 20150619, end: 20160123
  14. ONDANSETRON HYDROCHLORIDE. [Concomitant]
     Active Substance: ONDANSETRON HYDROCHLORIDE
     Indication: NAUSEA
     Dosage: 4 MG, FREQ: AS NEEDED
     Route: 048
     Dates: start: 20150301
  15. LAVENDER OIL [Concomitant]
     Active Substance: LAVENDER OIL
     Indication: SUPPLEMENTATION THERAPY
     Dosage: 1 DF, QD, FREQ: AS NEEDED
     Route: 048
     Dates: start: 20130101
  16. MAGNESIUM OXIDE. [Concomitant]
     Active Substance: MAGNESIUM OXIDE
     Indication: MIGRAINE
     Dosage: 400 MG, FREQ: 1 DAY; INTERVAL: 1
     Route: 048
     Dates: start: 20150904

REACTIONS (1)
  - Oral candidiasis [Recovering/Resolving]

NARRATIVE: CASE EVENT DATE: 20160123
